FAERS Safety Report 7612087-3 (Version None)
Quarter: 2011Q3

REPORT INFORMATION
  Report Type: 
  Country: None (occurrence: None)
  Receive Date: 20110715
  Receipt Date: 20110710
  Transmission Date: 20111222
  Serious: Yes (Hospitalization)
  Sender: FDA-Public Use
  Company Number: US-SANOFI-AVENTIS-2011SA044574

PATIENT
  Age: 85 Year
  Sex: Female

DRUGS (2)
  1. SOLOSTAR [Suspect]
     Indication: TYPE 2 DIABETES MELLITUS
     Dates: start: 20060101
  2. LANTUS [Suspect]
     Indication: TYPE 2 DIABETES MELLITUS
     Dosage: 45 UNITS IN THE AM AND 25 IN THE PM
     Route: 058
     Dates: start: 20060101

REACTIONS (2)
  - FALL [None]
  - LOSS OF CONSCIOUSNESS [None]
